FAERS Safety Report 17928243 (Version 1)
Quarter: 2020Q2

REPORT INFORMATION
  Report Type: Spontaneous
  Country: DE (occurrence: DE)
  Receive Date: 20200622
  Receipt Date: 20200622
  Transmission Date: 20200714
  Serious: Yes (Other)
  Sender: FDA-Public Use
  Company Number: NVSC2020DE074538

PATIENT
  Age: 78 Year
  Sex: Female

DRUGS (6)
  1. PROCARBAZINE [Suspect]
     Active Substance: PROCARBAZINE
     Dosage: 60 MG/M2
     Route: 065
  2. METHOTREXATE. [Suspect]
     Active Substance: METHOTREXATE
     Dosage: 3000 MG/M2
     Route: 065
  3. MABTHERA [Suspect]
     Active Substance: RITUXIMAB
     Indication: CENTRAL NERVOUS SYSTEM LYMPHOMA
     Dosage: 375 MG/M2
     Route: 065
  4. PROCARBAZINE [Suspect]
     Active Substance: PROCARBAZINE
     Indication: CENTRAL NERVOUS SYSTEM LYMPHOMA
     Dosage: 30 MG/M2
     Route: 065
  5. AVASTIN [Suspect]
     Active Substance: BEVACIZUMAB
     Indication: MACULAR DEGENERATION
     Dosage: UNK
     Route: 050
  6. METHOTREXATE. [Suspect]
     Active Substance: METHOTREXATE
     Indication: CENTRAL NERVOUS SYSTEM LYMPHOMA
     Dosage: 1800 MG/M2
     Route: 065

REACTIONS (5)
  - Stomatitis [Recovered/Resolved]
  - Intentional product use issue [Unknown]
  - Central nervous system lymphoma [Not Recovered/Not Resolved]
  - Off label use [Unknown]
  - Rash [Recovered/Resolved]
